FAERS Safety Report 9674877 (Version 1)
Quarter: 2013Q4

REPORT INFORMATION
  Report Type: Spontaneous
  Country: GR (occurrence: GR)
  Receive Date: 20131107
  Receipt Date: 20131107
  Transmission Date: 20140711
  Serious: No
  Sender: FDA-Public Use
  Company Number: PHHY2013GR125385

PATIENT
  Age: 82 Year
  Sex: Male

DRUGS (3)
  1. EXELON PATCH [Suspect]
     Indication: DEMENTIA
     Dosage: 4.6 MG/24 HR
     Route: 062
     Dates: start: 201305
  2. EXELON PATCH [Suspect]
     Dosage: 9.5 MG/24 HR
     Route: 062
  3. EBIXA [Concomitant]
     Dosage: UNK UKN, UNK

REACTIONS (3)
  - Disease progression [Unknown]
  - Diarrhoea [Unknown]
  - Wrong technique in drug usage process [Unknown]
